FAERS Safety Report 10760712 (Version 1)
Quarter: 2015Q1

REPORT INFORMATION
  Report Type: Spontaneous
  Country: BR (occurrence: BR)
  Receive Date: 20150204
  Receipt Date: 20150204
  Transmission Date: 20150721
  Serious: Yes (Other)
  Sender: FDA-Public Use
  Company Number: BR-BAYER-2014-156414

PATIENT
  Age: 30 Year
  Sex: Female

DRUGS (3)
  1. OMEPRAZOLE. [Concomitant]
     Active Substance: OMEPRAZOLE
     Indication: GASTRITIS
  2. MIRENA [Suspect]
     Active Substance: LEVONORGESTREL
     Indication: ENDOMETRIOSIS
     Dosage: 20 MCG/24HR, CONT
     Route: 015
     Dates: start: 201407
  3. OMEPRAZOLE. [Concomitant]
     Active Substance: OMEPRAZOLE
     Indication: GASTRIC ULCER
     Dosage: 1 DF, BID
     Route: 048
     Dates: start: 2007

REACTIONS (13)
  - Amenorrhoea [None]
  - Uterine infection [None]
  - Abdominal pain [Not Recovered/Not Resolved]
  - Secretion discharge [None]
  - Abdominal distension [None]
  - Product use issue [None]
  - Nausea [None]
  - Device dislocation [None]
  - Procedural pain [None]
  - Ovarian cyst [None]
  - Enterocolitis infectious [None]
  - Vaginal haemorrhage [Recovering/Resolving]
  - Procedural headache [None]

NARRATIVE: CASE EVENT DATE: 2014
